FAERS Safety Report 24746568 (Version 1)
Quarter: 2024Q4

REPORT INFORMATION
  Report Type: Spontaneous
  Country: PL (occurrence: PL)
  Receive Date: 20241218
  Receipt Date: 20241218
  Transmission Date: 20250115
  Serious: Yes (Other)
  Sender: AMGEN
  Company Number: PL-ROCHE-10000149316

PATIENT
  Age: 76 Year
  Sex: Female
  Weight: 67 kg

DRUGS (15)
  1. BEVACIZUMAB [Suspect]
     Active Substance: BEVACIZUMAB
     Indication: Hepatocellular carcinoma
     Dosage: 1080 MILLIGRAM, Q3WK (START DATE OF MOST RECENT DOSE OF STUDY DRUG PRIOR TO AE 08-OCT-2024)
     Route: 040
     Dates: start: 20240523
  2. ATEZOLIZUMAB [Suspect]
     Active Substance: ATEZOLIZUMAB
     Indication: Hepatocellular carcinoma
     Dosage: 1200 MILLIGRAM, Q3WK I(START DATE OF MOST RECENT DOSE OF STUDY DRUG PRIOR TO AE 08-OCT-2024)
     Route: 040
     Dates: start: 20240523
  3. TIRAGOLUMAB [Suspect]
     Active Substance: TIRAGOLUMAB
     Indication: Hepatocellular carcinoma
     Dosage: 600 MILLIGRAM, Q3WK (START DATE OF MOST RECENT DOSE OF STUDY DRUG PRIOR TO AE 08-OCT-2024)
     Route: 040
     Dates: start: 20240523
  4. HUMALOG [Concomitant]
     Active Substance: INSULIN LISPRO
     Indication: Diabetes mellitus
     Dosage: 46 INTERNATIONAL UNIT (PER 0.5 DAY)
     Route: 058
     Dates: start: 2023
  5. HUMALOG [Concomitant]
     Active Substance: INSULIN LISPRO
     Dosage: 32 INTERNATIONAL UNIT, QD
     Route: 058
     Dates: start: 2023
  6. Tenox [Concomitant]
     Indication: Hypertension
     Dosage: 10 MILLIGRAM, QD
     Route: 048
     Dates: start: 2014
  7. CARVEDILOL [Concomitant]
     Active Substance: CARVEDILOL
     Indication: Hypertension
     Dosage: 6.25 MILLIGRAM
     Route: 048
     Dates: start: 2014
  8. RAMIPRIL [Concomitant]
     Active Substance: RAMIPRIL
     Indication: Hypertension
     Dosage: 5 MILLIGRAM, QD
     Route: 048
     Dates: start: 2014
  9. ENTECAVIR [Concomitant]
     Active Substance: ENTECAVIR
     Indication: Hepatitis B reactivation
     Dosage: GIVEN FOR PROPHYLAXIS IS YES
     Route: 048
     Dates: start: 20240430
  10. ASPIRIN [Concomitant]
     Active Substance: ASPIRIN
     Indication: Coronary artery disease
     Dosage: 75 MILLIGRAM, QD
     Route: 048
     Dates: start: 2014
  11. URSODIOL [Concomitant]
     Active Substance: URSODIOL
     Indication: Liver injury
     Dosage: GIVEN FOR PROPHYLAXIS IS YES
     Route: 048
  12. Ridlip [Concomitant]
     Dosage: 20 MILLIGRAM, QD
     Route: 048
     Dates: start: 2014
  13. BETAMETHASONE DIPROPIONATE\GENTAMICIN SULFATE [Concomitant]
     Active Substance: BETAMETHASONE DIPROPIONATE\GENTAMICIN SULFATE
     Dosage: 1 OTHER
     Route: 062
     Dates: start: 20241005, end: 20241015
  14. ANTAZOLINE HYDROCHLORIDE [Concomitant]
     Active Substance: ANTAZOLINE HYDROCHLORIDE
     Indication: Product used for unknown indication
     Dosage: 100 MILLIGRAM, QD
     Route: 058
     Dates: start: 20241005, end: 20241015
  15. ELITASONE [Concomitant]
     Dosage: UNK
     Route: 062
     Dates: start: 20240930, end: 20241005

REACTIONS (2)
  - Autoimmune thyroiditis [Recovering/Resolving]
  - Off label use [Unknown]

NARRATIVE: CASE EVENT DATE: 20241021
